FAERS Safety Report 10258275 (Version 3)
Quarter: 2014Q3

REPORT INFORMATION
  Report Type: Spontaneous
  Country: US (occurrence: None)
  Receive Date: 20140623
  Receipt Date: 20140911
  Transmission Date: 20150326
  Serious: Yes (Hospitalization, Other)
  Sender: FDA-Public Use
  Company Number: UNT-2014-002224

PATIENT
  Age: 66 Year
  Sex: Female
  Weight: 81.6 kg

DRUGS (5)
  1. LETAIRIS [Concomitant]
     Active Substance: AMBRISENTAN
  2. OXYGEN. [Concomitant]
     Active Substance: OXYGEN
  3. REVATIO (SILDENAFIL CITRATE) [Concomitant]
  4. TYVASO [Suspect]
     Active Substance: TREPROSTINIL
     Indication: PULMONARY ARTERIAL HYPERTENSION
     Route: 055
     Dates: start: 20130828
  5. RIOCIGUAT (RIOCIGUAT) [Concomitant]

REACTIONS (10)
  - Pulmonary arterial hypertension [None]
  - Thrombosis [None]
  - Renal failure chronic [None]
  - Dyspnoea [None]
  - Oedema [None]
  - Deep vein thrombosis [None]
  - Pulmonary congestion [None]
  - Mass [None]
  - Heart sounds abnormal [None]
  - Blood pressure decreased [None]

NARRATIVE: CASE EVENT DATE: 20140517
